FAERS Safety Report 24806134 (Version 1)
Quarter: 2025Q1

REPORT INFORMATION
  Report Type: Spontaneous
  Country: US (occurrence: None)
  Receive Date: 20250103
  Receipt Date: 20250103
  Transmission Date: 20250408
  Serious: Yes (unspecified)
  Sender: FDA-CTU
  Company Number: None

PATIENT
  Age: 79 Year
  Sex: Male
  Weight: 69.2 kg

DRUGS (2)
  1. LEQEMBI [Suspect]
     Active Substance: LECANEMAB-IRMB
     Indication: Dementia Alzheimer^s type
     Dosage: 700 MG EVERY 2 WEEKS INTRAVENOUS DRIP
     Route: 041
     Dates: start: 20241014, end: 20241125
  2. SODIUM CHLORIDE [Concomitant]
     Active Substance: SODIUM CHLORIDE
     Dates: start: 20241014, end: 20241125

REACTIONS (3)
  - Subdural haemorrhage [None]
  - Subdural haematoma [None]
  - Head injury [None]

NARRATIVE: CASE EVENT DATE: 20241126
